FAERS Safety Report 9170311 (Version 3)
Quarter: 2013Q2

REPORT INFORMATION
  Report Type: Spontaneous
  Country: US (occurrence: US)
  Receive Date: 20130319
  Receipt Date: 20130603
  Transmission Date: 20140414
  Serious: No
  Sender: FDA-Public Use
  Company Number: US-009507513-1303USA008595

PATIENT
  Age: 60 Year
  Sex: Male

DRUGS (6)
  1. PEGINTRON [Suspect]
     Indication: HEPATITIS C
     Dosage: 120 MICROGRAM, QW
     Dates: start: 20130315
  2. PEGINTRON [Suspect]
     Dosage: UNK
     Route: 058
     Dates: start: 20130322
  3. REBETOL [Suspect]
     Indication: HEPATITIS C
     Dosage: UNK
     Route: 048
     Dates: start: 20130322
  4. RIBAPAK [Suspect]
     Dosage: UNK
  5. TELAPREVIR [Suspect]
     Indication: HEPATITIS C
     Dosage: UNK
     Dates: start: 20130322
  6. TELAPREVIR [Suspect]

REACTIONS (7)
  - Dysgeusia [Recovered/Resolved]
  - Incorrect dose administered [Unknown]
  - Accidental exposure to product [Unknown]
  - Product quality issue [Unknown]
  - Injection site reaction [Unknown]
  - Contusion [Not Recovered/Not Resolved]
  - Rash [Unknown]
